FAERS Safety Report 6372313-8 (Version None)
Quarter: 2009Q3

REPORT INFORMATION
  Report Type: 
  Country: None (occurrence: None)
  Receive Date: 20090924
  Receipt Date: 20081006
  Transmission Date: 20100115
  Serious: No
  Sender: FDA-Public Use
  Company Number: US-ASTRAZENECA-2008UW21767

PATIENT
  Age: 58 Year
  Sex: Female
  Weight: 85.7 kg

DRUGS (8)
  1. SEROQUEL [Suspect]
     Indication: PANIC DISORDER
     Route: 048
     Dates: start: 20080901
  2. SEROQUEL [Suspect]
     Indication: ANXIETY
     Route: 048
     Dates: start: 20080901
  3. SEROQUEL [Suspect]
     Dosage: CUT 200 MG XR TABLET IN HALF
     Route: 048
  4. SEROQUEL [Suspect]
     Dosage: CUT 200 MG XR TABLET IN HALF
     Route: 048
  5. PROZAC [Concomitant]
  6. SYNTHROID [Concomitant]
  7. METOPROLOL TARTRATE [Concomitant]
  8. FUROSET [Concomitant]

REACTIONS (4)
  - MEDICATION ERROR [None]
  - PALPITATIONS [None]
  - TREMOR [None]
  - WEIGHT INCREASED [None]
